FAERS Safety Report 18217048 (Version 2)
Quarter: 2020Q4

REPORT INFORMATION
  Report Type: Spontaneous
  Country: US (occurrence: US)
  Receive Date: 20200901
  Receipt Date: 20201009
  Transmission Date: 20210113
  Serious: No
  Sender: FDA-Public Use
  Company Number: US-PFIZER INC-2020336366

PATIENT
  Age: 76 Year
  Sex: Female
  Weight: 86.18 kg

DRUGS (2)
  1. PREMARIN [Suspect]
     Active Substance: ESTROGENS, CONJUGATED
     Indication: URINARY TRACT INFECTION
     Dosage: UNK, CYCLIC (THREE TIMES A WEEK AND I AM SUPPOSED TO BE USING IT 05)
  2. AMLODIPINE [Concomitant]
     Active Substance: AMLODIPINE BESYLATE
     Indication: HYPERTENSION
     Dosage: 10 MG, 1X/DAY
     Route: 048

REACTIONS (3)
  - Off label use [Unknown]
  - Body height decreased [Unknown]
  - Product use in unapproved indication [Unknown]
